FAERS Safety Report 19584827 (Version 3)
Quarter: 2021Q4

REPORT INFORMATION
  Report Type: Spontaneous
  Country: SK (occurrence: SK)
  Receive Date: 20210720
  Receipt Date: 20211015
  Transmission Date: 20220303
  Serious: Yes (Other)
  Sender: FDA-Public Use
  Company Number: SK-MERCK HEALTHCARE KGAA-9247559

PATIENT
  Age: 53 Year
  Sex: Male

DRUGS (16)
  1. METFORMIN [Suspect]
     Active Substance: METFORMIN HYDROCHLORIDE
     Indication: Type 2 diabetes mellitus
     Route: 065
     Dates: end: 2016
  2. METFORMIN [Suspect]
     Active Substance: METFORMIN HYDROCHLORIDE
     Route: 065
     Dates: start: 201707
  3. METFORMIN [Suspect]
     Active Substance: METFORMIN HYDROCHLORIDE
     Dosage: (2 X 5/1,000 MG/DAY).
     Route: 065
     Dates: start: 201710
  4. GLICLAZIDE [Suspect]
     Active Substance: GLICLAZIDE
     Indication: Type 2 diabetes mellitus
     Route: 065
     Dates: end: 2016
  5. GLICLAZIDE [Suspect]
     Active Substance: GLICLAZIDE
     Route: 065
     Dates: start: 201707
  6. EXENATIDE [Suspect]
     Active Substance: EXENATIDE
     Indication: Type 2 diabetes mellitus
     Route: 065
     Dates: start: 201605, end: 2017
  7. INSULIN GLARGINE [Suspect]
     Active Substance: INSULIN GLARGINE
     Indication: Type 2 diabetes mellitus
     Dosage: TOTAL DAILY INSULIN DOSE WAS 80 UNITS/DAY (INSULIN LISPRO PLUS GLARGINE)
     Route: 065
     Dates: start: 201710, end: 201811
  8. INSULIN GLARGINE [Suspect]
     Active Substance: INSULIN GLARGINE
     Dosage: 28 UNITS
     Route: 065
     Dates: start: 201707, end: 201710
  9. INSULIN GLARGINE [Suspect]
     Active Substance: INSULIN GLARGINE
     Dosage: 12 UNITS PER DAY (REDUCTION OF THE GLARGINE DOSE UNTIL IT IS DISCONTINUED FROM TREATMENT)
     Route: 065
     Dates: start: 201811
  10. INSULIN LISPRO [Suspect]
     Active Substance: INSULIN LISPRO
     Indication: Type 2 diabetes mellitus
     Dosage: DOSE UNSPECIFIED
     Route: 065
  11. INSULIN LISPRO [Suspect]
     Active Substance: INSULIN LISPRO
     Dosage: TOTAL DAILY INSULIN DOSE WAS 80 UNITS/DAY (INSULIN LISPRO PLUS GLARGINE)
     Route: 065
     Dates: start: 201710, end: 201811
  12. INSULIN LISPRO [Suspect]
     Active Substance: INSULIN LISPRO
     Dosage: 15 UNITS PER DAY
     Route: 065
     Dates: start: 201811
  13. ATORVASTATIN [Concomitant]
     Active Substance: ATORVASTATIN
     Indication: Product used for unknown indication
  14. BISOPROLOL [Concomitant]
     Active Substance: BISOPROLOL
     Indication: Hypertension
  15. MOXONIDINE [Concomitant]
     Active Substance: MOXONIDINE
     Indication: Hypertension
  16. INDAPAMIDE\PERINDOPRIL [Concomitant]
     Active Substance: INDAPAMIDE\PERINDOPRIL
     Indication: Hypertension
     Dosage: 1 X 10/2.5 MG

REACTIONS (1)
  - Diabetes mellitus inadequate control [Recovered/Resolved]

NARRATIVE: CASE EVENT DATE: 20160501
